FAERS Safety Report 7339030-9 (Version None)
Quarter: 2011Q1

REPORT INFORMATION
  Report Type: 
  Country: None (occurrence: None)
  Receive Date: 20110308
  Receipt Date: 20110223
  Transmission Date: 20110831
  Serious: Yes (Hospitalization)
  Sender: FDA-Public Use
  Company Number: FR-ELI_LILLY_AND_COMPANY-FR201102007486

PATIENT
  Sex: Female

DRUGS (2)
  1. CYMBALTA [Suspect]
     Dosage: 1 D/F, DAILY (1/D)
     Route: 048
     Dates: start: 20091029, end: 20091107
  2. NABUCOX /FRA/ [Concomitant]
     Indication: SCIATICA
     Dosage: 500 MG, 2/D
     Route: 048
     Dates: start: 20091029, end: 20091105

REACTIONS (2)
  - PRURITUS [None]
  - RASH MACULO-PAPULAR [None]
